FAERS Safety Report 24706509 (Version 1)
Quarter: 2024Q4

REPORT INFORMATION
  Report Type: Spontaneous
  Country: US (occurrence: US)
  Receive Date: 20241206
  Receipt Date: 20241206
  Transmission Date: 20250115
  Serious: No
  Sender: BAYER HEALTHCARE PHARMACEUTICALS INC.
  Company Number: US-BAYER-2024A172325

PATIENT
  Age: 19 Year
  Sex: Female

DRUGS (2)
  1. MIRENA [Suspect]
     Active Substance: LEVONORGESTREL
     Indication: Intrauterine contraception
     Dosage: 20?G/DAY
     Route: 015
     Dates: start: 202410, end: 202410
  2. NEXPLANON [Concomitant]
     Active Substance: ETONOGESTREL

REACTIONS (2)
  - Complication of device insertion [None]
  - Post procedural discomfort [None]

NARRATIVE: CASE EVENT DATE: 20241001
